FAERS Safety Report 13119360 (Version 1)
Quarter: 2017Q1

REPORT INFORMATION
  Report Type: Report from Study
  Country: US (occurrence: US)
  Receive Date: 20170116
  Receipt Date: 20170116
  Transmission Date: 20170428
  Serious: Yes (Other)
  Sender: FDA-Public Use
  Company Number: US-GILEAD-2017-0253015

PATIENT
  Sex: Male

DRUGS (1)
  1. LEDIPASVIR/SOFOSBUVIR [Suspect]
     Active Substance: LEDIPASVIR\SOFOSBUVIR
     Indication: HEPATITIS C
     Dosage: 1 DF, QD
     Route: 048
     Dates: start: 20141101, end: 20141228

REACTIONS (5)
  - Incorrect drug administration duration [Recovered/Resolved]
  - Cardiac disorder [Unknown]
  - Hepatitis C [Unknown]
  - Product use issue [Recovered/Resolved]
  - Drug ineffective [Unknown]
